FAERS Safety Report 16415179 (Version 3)
Quarter: 2019Q3

REPORT INFORMATION
  Report Type: Spontaneous
  Country: US (occurrence: US)
  Receive Date: 20190611
  Receipt Date: 20190930
  Transmission Date: 20191004
  Serious: No
  Sender: FDA-Public Use
  Company Number: US-PFIZER INC-2019244827

PATIENT
  Age: 42 Year
  Sex: Female
  Weight: 139.7 kg

DRUGS (6)
  1. KEPPRA [Concomitant]
     Active Substance: LEVETIRACETAM
     Indication: OESTROGEN THERAPY
     Dosage: 1000 MG, 2X/DAY
     Route: 048
     Dates: start: 2005
  2. KEPPRA [Concomitant]
     Active Substance: LEVETIRACETAM
     Indication: EPILEPSY
  3. DEPO-PROVERA [Suspect]
     Active Substance: MEDROXYPROGESTERONE ACETATE
     Indication: MENOPAUSE
     Dosage: UNK
     Dates: start: 200901, end: 20190107
  4. TEGRETOL [Concomitant]
     Active Substance: CARBAMAZEPINE
     Indication: OESTROGEN THERAPY
     Dosage: UNK, 2X/DAY (2.5 TABLETS TAKEN BY MOUTH TWICE DAILY)
     Route: 048
     Dates: start: 2005
  5. TEGRETOL [Concomitant]
     Active Substance: CARBAMAZEPINE
     Indication: EPILEPSY
  6. DEPO-PROVERA [Suspect]
     Active Substance: MEDROXYPROGESTERONE ACETATE
     Indication: MENSTRUAL CYCLE MANAGEMENT
     Dosage: UNK, EVERY 3 MONTHS (1 INTRAMUSCULAR INJECTION ADMINISTERED EVERY 3 MONTHS IN ARM)
     Route: 030
     Dates: start: 2009, end: 20190104

REACTIONS (3)
  - Drug effective for unapproved indication [Unknown]
  - Metrorrhagia [Recovered/Resolved]
  - Off label use [Unknown]

NARRATIVE: CASE EVENT DATE: 201004
